FAERS Safety Report 6417591-1 (Version None)
Quarter: 2009Q4

REPORT INFORMATION
  Report Type: 
  Country: None (occurrence: None)
  Receive Date: 20091028
  Receipt Date: 20091022
  Transmission Date: 20100525
  Serious: Yes (Other)
  Sender: FDA-Public Use
  Company Number: CN-ROCHE-663819

PATIENT
  Sex: Female

DRUGS (2)
  1. XELODA [Suspect]
     Route: 048
     Dates: start: 20080601, end: 20090501
  2. NAVELBINE [Concomitant]
     Route: 041
     Dates: start: 20080601, end: 20080801

REACTIONS (3)
  - CARBOHYDRATE ANTIGEN 15-3 INCREASED [None]
  - METASTASES TO LIVER [None]
  - THROMBOSIS [None]
